FAERS Safety Report 5725919-0 (Version None)
Quarter: 2008Q2

REPORT INFORMATION
  Report Type: 
  Country: None (occurrence: None)
  Receive Date: 20080502
  Receipt Date: 20080328
  Transmission Date: 20081010
  Serious: No
  Sender: FDA-Public Use
  Company Number: US-BAYER-200818842NA

PATIENT
  Sex: Female
  Weight: 68 kg

DRUGS (1)
  1. MAGNEVIST [Suspect]
     Indication: NUCLEAR MAGNETIC RESONANCE IMAGING BRAIN
     Dosage: TOTAL DAILY DOSE: 7 ML  UNIT DOSE: 10 ML
     Route: 042
     Dates: start: 20080328, end: 20080328

REACTIONS (2)
  - PRURITUS [None]
  - URTICARIA [None]
